FAERS Safety Report 8289620 (Version 2)
Quarter: 2012Q4

REPORT INFORMATION
  Report Type: 
  Country: US (occurrence: US)
  Receive Date: 20111214
  Receipt Date: 20120903
  Transmission Date: 20130627
  Serious: Yes (Other)
  Sender: FDA-Public Use
  Company Number: US-AMGEN-USASP2011063614

PATIENT
  Age: 13 Year
  Sex: Female

DRUGS (6)
  1. ENBREL [Suspect]
     Indication: PSORIATIC ARTHROPATHY
     Dosage: 37.5 mg, qwk
     Route: 058
     Dates: start: 20110920, end: 20111102
  2. METHOTREXATE [Concomitant]
     Indication: MUSCULOSKELETAL DISORDER
     Dosage: 12.5 mg, qwk
     Route: 048
  3. COLCHICINE [Concomitant]
     Indication: MUSCULOSKELETAL DISORDER
     Dosage: 0.6 mg, bid
     Route: 048
  4. FLEXERIL [Concomitant]
     Indication: PAIN
     Dosage: 5 mg, qhs
     Route: 048
  5. FLEXERIL [Concomitant]
     Indication: INSOMNIA
  6. VICODIN [Concomitant]
     Indication: PAIN
     Dosage: 5 mg, prn
     Route: 048

REACTIONS (4)
  - Raynaud^s phenomenon [Recovered/Resolved]
  - Psoriatic arthropathy [Not Recovered/Not Resolved]
  - Musculoskeletal pain [Recovered/Resolved]
  - Tremor [Recovered/Resolved]
